FAERS Safety Report 9817884 (Version 1)
Quarter: 2013Q4

REPORT INFORMATION
  Report Type: Spontaneous
  Country: US (occurrence: None)
  Receive Date: 20131224
  Receipt Date: 20131224
  Transmission Date: 20140711
  Serious: No
  Sender: FDA-Public Use
  Company Number: PHEH2013US019214

PATIENT
  Age: 57 Year
  Sex: Male

DRUGS (8)
  1. GILENYA [Suspect]
     Indication: MULTIPLE SCLEROSIS
     Route: 048
     Dates: start: 20130503, end: 20130826
  2. BACLOFEN (BACLOFEN) [Concomitant]
  3. PROVIGIL/MODAFINIL (MODAFINIL) [Concomitant]
  4. GABAPENTIN (GABAPENTIN) [Concomitant]
  5. ZETIA (EZETIMIBE) [Concomitant]
  6. AMPYRA (FAMPRIDINE) [Concomitant]
  7. VITAMIN D (ERGOCALCIFEROL) [Concomitant]
  8. VITA B12 (CYANOCOBALMIN) [Concomitant]

REACTIONS (7)
  - Chest pain [None]
  - Chest discomfort [None]
  - Visual impairment [None]
  - Gait disturbance [None]
  - Asthenia [None]
  - Dyspnoea [None]
  - Dizziness [None]
